FAERS Safety Report 9901937 (Version 2)
Quarter: 2014Q1

REPORT INFORMATION
  Report Type: Spontaneous
  Country: DE (occurrence: DE)
  Receive Date: 20140217
  Receipt Date: 20140331
  Transmission Date: 20141002
  Serious: Yes (Death, Hospitalization)
  Sender: FDA-Public Use
  Company Number: DE-GLAXOSMITHKLINE-D0082863A

PATIENT
  Age: 70 Year
  Sex: Female

DRUGS (4)
  1. REVOLADE [Suspect]
     Indication: IMMUNE THROMBOCYTOPENIC PURPURA
     Dosage: 600MG PER DAY
     Route: 065
     Dates: start: 201308, end: 20131227
  2. NPLATE [Suspect]
     Indication: IMMUNE THROMBOCYTOPENIC PURPURA
     Route: 065
     Dates: start: 201303
  3. STEROID [Concomitant]
     Route: 065
  4. PREDNISONE [Concomitant]
     Route: 065

REACTIONS (4)
  - Acute myeloid leukaemia [Unknown]
  - Pancytopenia [Unknown]
  - Gastrointestinal disorder [Unknown]
  - Death [Fatal]
